FAERS Safety Report 4933699-1 (Version None)
Quarter: 2006Q1

REPORT INFORMATION
  Report Type: 
  Country: None (occurrence: None)
  Receive Date: 20060306
  Receipt Date: 20060214
  Transmission Date: 20060701
  Serious: No
  Sender: FDA-Public Use
  Company Number: JP-AVENTIS-200610517JP

PATIENT

DRUGS (1)
  1. AMARYL [Suspect]
     Indication: DIABETES MELLITUS
     Route: 048

REACTIONS (1)
  - NO ADVERSE EFFECT [None]
